FAERS Safety Report 23966951 (Version 1)
Quarter: 2024Q2

REPORT INFORMATION
  Report Type: Spontaneous
  Country: US (occurrence: US)
  Receive Date: 20240612
  Receipt Date: 20240612
  Transmission Date: 20240716
  Serious: No
  Sender: FDA-Public Use
  Company Number: US-TEVA-VS-3205339

PATIENT
  Age: 62 Year
  Sex: Male
  Weight: 73.5 kg

DRUGS (1)
  1. FLOMAX [Suspect]
     Active Substance: TAMSULOSIN HYDROCHLORIDE
     Indication: Product used for unknown indication
     Route: 065

REACTIONS (15)
  - Testicular atrophy [Unknown]
  - Gynaecomastia [Unknown]
  - Dizziness [Unknown]
  - Pain [Unknown]
  - Hot flush [Not Recovered/Not Resolved]
  - Nasopharyngitis [Unknown]
  - Weight increased [Not Recovered/Not Resolved]
  - Mood swings [Unknown]
  - Fatigue [Not Recovered/Not Resolved]
  - Poor quality sleep [Unknown]
  - Urine flow decreased [Unknown]
  - Nocturia [Unknown]
  - Penile burning sensation [Unknown]
  - Penile haemorrhage [Unknown]
  - Restlessness [Unknown]
